FAERS Safety Report 5817815-5 (Version None)
Quarter: 2008Q3

REPORT INFORMATION
  Report Type: 
  Country: None (occurrence: None)
  Receive Date: 20080722
  Receipt Date: 20080716
  Transmission Date: 20090109
  Serious: Yes (Life-Threatening)
  Sender: FDA-Public Use
  Company Number: US-SANOFI-SYNTHELABO-A03200802822

PATIENT
  Age: 38 Year
  Sex: Female

DRUGS (3)
  1. AMBIEN [Suspect]
     Indication: INSOMNIA
     Route: 048
     Dates: start: 20070101
  2. AMOXICILLIN [Concomitant]
     Indication: UPPER RESPIRATORY TRACT INFECTION
     Dosage: UNK
     Route: 065
     Dates: start: 20080101
  3. BENZONATATE [Interacting]
     Indication: ASTHMA
     Dosage: UNK
     Route: 065
     Dates: start: 20080101

REACTIONS (5)
  - DIARRHOEA [None]
  - DRUG INTERACTION [None]
  - NAUSEA [None]
  - TONIC CONVULSION [None]
  - VOMITING [None]
